FAERS Safety Report 5211890-7 (Version None)
Quarter: 2007Q1

REPORT INFORMATION
  Report Type: 
  Country: None (occurrence: None)
  Receive Date: 20070118
  Receipt Date: 20070111
  Transmission Date: 20070707
  Serious: Yes (Other)
  Sender: FDA-Public Use
  Company Number: US-JNJFOC-20070102614

PATIENT
  Sex: Female
  Weight: 76.66 kg

DRUGS (18)
  1. REMICADE [Suspect]
     Indication: RHEUMATOID ARTHRITIS
     Route: 042
  2. CENESTIN [Concomitant]
  3. CYCLOBENZAPRINE HCL [Concomitant]
  4. NITROGLYCERIN [Concomitant]
  5. ASPIRIN [Concomitant]
  6. NIFEDIPINE [Concomitant]
  7. DIOVAN [Concomitant]
  8. CYMBALTA [Concomitant]
  9. MULTIVITAMINS WITH MINERALS [Concomitant]
  10. FOLIC ACID [Concomitant]
  11. MTX [Concomitant]
     Route: 050
  12. ALEVE [Concomitant]
  13. BONIVA [Concomitant]
  14. LIPITOR [Concomitant]
  15. KETOPROFEN [Concomitant]
  16. METAMUCIL [Concomitant]
  17. ACETAMINOPHEN AND CODEINE PHOSPHATE #3 [Concomitant]
  18. LASIX [Concomitant]

REACTIONS (1)
  - SQUAMOUS CELL CARCINOMA [None]
